FAERS Safety Report 10440333 (Version 1)
Quarter: 2014Q3

REPORT INFORMATION
  Report Type: Spontaneous
  Country: CZ (occurrence: CZ)
  Receive Date: 20140909
  Receipt Date: 20140909
  Transmission Date: 20150326
  Serious: Yes (Hospitalization, Other)
  Sender: FDA-Public Use
  Company Number: CZ-ROCHE-1459257

PATIENT
  Sex: Female

DRUGS (7)
  1. XOLAIR [Suspect]
     Active Substance: OMALIZUMAB
     Indication: ASTHMA
     Route: 065
     Dates: end: 2009
  2. FENULES (RUSSIA) [Concomitant]
  3. XOLAIR [Suspect]
     Active Substance: OMALIZUMAB
     Route: 065
     Dates: start: 2013
  4. NICOTINAMIDE [Concomitant]
     Active Substance: NIACINAMIDE
  5. RIBOFLAVIN [Concomitant]
     Active Substance: RIBOFLAVIN
  6. PYRIDOXINE HYDROCHLORIDE. [Concomitant]
     Active Substance: PYRIDOXINE HYDROCHLORIDE
  7. THIAMINE HYDROCHLORIDE. [Concomitant]
     Active Substance: THIAMINE HYDROCHLORIDE

REACTIONS (3)
  - Asthma [Unknown]
  - Alopecia [Not Recovered/Not Resolved]
  - Respiration abnormal [Unknown]
